FAERS Safety Report 24639837 (Version 2)
Quarter: 2025Q4

REPORT INFORMATION
  Report Type: Spontaneous
  Country: US (occurrence: US)
  Receive Date: 20241120
  Receipt Date: 20251121
  Transmission Date: 20260118
  Serious: No
  Sender: ALVOGEN
  Company Number: US-ALVOGEN-2023092839

PATIENT
  Sex: Female

DRUGS (5)
  1. TERIPARATIDE [Suspect]
     Active Substance: TERIPARATIDE
     Indication: Osteoporosis
     Dosage: TAKING FOR 3 MONTHS DAILY?1 INJECTION A DAY?EXPIRATION DATE: UU-OCT-2024?STRENGTH: 250MCG/ML
     Route: 058
     Dates: start: 202309, end: 202401
  2. TERIPARATIDE [Suspect]
     Active Substance: TERIPARATIDE
     Indication: Osteoporosis
     Dosage: USED LAST MONTH;?1 INJECTION A DAY?STRENGTH: 250MCG/ML
     Route: 058
     Dates: start: 202502
  3. TERIPARATIDE [Suspect]
     Active Substance: TERIPARATIDE
     Indication: Osteoporosis
     Dosage: EXPIRATION DATE: OCT-2025?TOOK 4 DOSES
     Route: 058
     Dates: start: 202503
  4. TERIPARATIDE [Suspect]
     Active Substance: TERIPARATIDE
     Indication: Osteoporosis
  5. VITAMIN B12 [Concomitant]
     Active Substance: CYANOCOBALAMIN
     Indication: Product used for unknown indication

REACTIONS (14)
  - Heart valve incompetence [Unknown]
  - Condition aggravated [Unknown]
  - Gingivitis [Unknown]
  - Palpitations [Unknown]
  - Scratch [Unknown]
  - Dizziness [Recovered/Resolved]
  - Intentional dose omission [Unknown]
  - Device issue [Unknown]
  - Device operational issue [Unknown]
  - Device malfunction [Unknown]
  - Needle issue [Unknown]
  - Product dose omission issue [Unknown]
  - Wrong technique in product usage process [Unknown]
  - Drug ineffective [Unknown]

NARRATIVE: CASE EVENT DATE: 20231201
